FAERS Safety Report 17983056 (Version 1)
Quarter: 2020Q3

REPORT INFORMATION
  Report Type: Spontaneous
  Country: US (occurrence: US)
  Receive Date: 20200706
  Receipt Date: 20200706
  Transmission Date: 20201103
  Serious: No
  Sender: FDA-Public Use
  Company Number: US-PFIZER INC-2020256905

PATIENT
  Age: 50 Year
  Sex: Male
  Weight: 97.51 kg

DRUGS (1)
  1. XELJANZ [Suspect]
     Active Substance: TOFACITINIB CITRATE
     Indication: PSORIASIS
     Dosage: 5 MG, 2X/DAY
     Route: 048
     Dates: start: 202006

REACTIONS (2)
  - Acne [Unknown]
  - Oropharyngeal pain [Unknown]
